FAERS Safety Report 13652122 (Version 1)
Quarter: 2017Q2

REPORT INFORMATION
  Report Type: Report from Study
  Country: BE (occurrence: BE)
  Receive Date: 20170614
  Receipt Date: 20170614
  Transmission Date: 20170830
  Serious: Yes (Hospitalization, Disabling)
  Sender: FDA-Public Use
  Company Number: BE-AMGEN-BELCT2014036700

PATIENT
  Age: 78 Year
  Sex: Female
  Weight: 59.5 kg

DRUGS (27)
  1. AMG 386 [Suspect]
     Active Substance: TREBANANIB
     Indication: OVARIAN CANCER
     Dosage: UNK
     Route: 065
     Dates: start: 20131231
  2. HARTMANN                           /03353501/ [Concomitant]
     Dosage: 1 UNK, UNK
     Route: 042
     Dates: start: 20140314, end: 20140314
  3. LITICAN                            /00690801/ [Concomitant]
     Active Substance: ALIZAPRIDE
     Dosage: 50 MG, UNK
     Route: 042
     Dates: start: 20140102, end: 20140601
  4. HEPARINE                           /00027701/ [Concomitant]
     Active Substance: HEPARIN SODIUM
     Dosage: 3 UNK, UNK
     Route: 042
     Dates: start: 20140321, end: 20140321
  5. SANDOSTATINE                       /00821001/ [Concomitant]
     Active Substance: OCTREOTIDE ACETATE
     Dosage: 0.5-30 MG, UNK
     Route: 058
     Dates: start: 20140426, end: 20140502
  6. ASAFLOW [Concomitant]
     Active Substance: ASPIRIN
     Dosage: 80 MG, UNK
     Route: 048
     Dates: start: 2008, end: 20140601
  7. ALDACTAZINE [Concomitant]
     Active Substance: ALTHIAZIDE\SPIRONOLACTONE
     Dosage: UNK, UNK
     Route: 048
     Dates: start: 2008, end: 20140601
  8. CARBOPLATIN. [Concomitant]
     Active Substance: CARBOPLATIN
     Dosage: 285-378 MG, UNK
     Route: 042
     Dates: start: 20140403, end: 20140516
  9. OMEPRAZOLE. [Concomitant]
     Active Substance: OMEPRAZOLE
     Dosage: 40 MG, UNK
     Route: 048
     Dates: start: 2003, end: 20140601
  10. LASIX [Concomitant]
     Active Substance: FUROSEMIDE
     Dosage: 80 MG, UNK
     Route: 042
     Dates: start: 20140316, end: 20140318
  11. DAFALGAN [Concomitant]
     Active Substance: ACETAMINOPHEN
     Dosage: 750 MG-1G UNK
     Route: 042
     Dates: start: 20140315, end: 20140426
  12. SOLU-MEDROL [Concomitant]
     Active Substance: METHYLPREDNISOLONE SODIUM SUCCINATE
     Dosage: 40 MG, UNK
     Route: 042
     Dates: start: 20140403, end: 20140403
  13. DEXAMETHASONE. [Concomitant]
     Active Substance: DEXAMETHASONE
     Dosage: 20 MG, UNK
     Route: 048
     Dates: start: 20131230, end: 20140516
  14. CEFAZOLINE MYLAN [Concomitant]
     Active Substance: CEFAZOLIN SODIUM
     Dosage: 2 G, UNK
     Route: 042
     Dates: start: 20140314, end: 20140314
  15. LORMETAZEPAM [Concomitant]
     Active Substance: LORMETAZEPAM
     Dosage: 2 MG, UNK
     Route: 048
     Dates: start: 20140313, end: 20140401
  16. XANAX [Concomitant]
     Active Substance: ALPRAZOLAM
     Dosage: 0.5-1 MG, UNK
     Route: 048
     Dates: start: 20140314, end: 20140425
  17. ZYRTEC [Concomitant]
     Active Substance: CETIRIZINE HYDROCHLORIDE
     Dosage: 10 MG, UNK
     Route: 048
     Dates: start: 20131230, end: 20140516
  18. ZANTAC [Concomitant]
     Active Substance: RANITIDINE HYDROCHLORIDE
     Dosage: 50-150 MG, UNK
     Route: 042
     Dates: start: 20131231, end: 20140516
  19. FLAGYL [Concomitant]
     Active Substance: METRONIDAZOLE\METRONIDAZOLE HYDROCHLORIDE
     Dosage: 1500 MG, UNK
     Route: 042
     Dates: start: 20140314, end: 20140314
  20. CLOZAN [Concomitant]
     Dosage: 5 MUG-5 MG UNK
     Route: 048
     Dates: start: 2013, end: 20140601
  21. MOVICOL [Concomitant]
     Active Substance: POLYETHYLENE GLYCOL 3350\POTASSIUM CHLORIDE\SODIUM BICARBONATE\SODIUM CHLORIDE
     Dosage: 1 UNK, UNK
     Route: 048
     Dates: start: 20140401, end: 20140403
  22. ZOFRAN [Concomitant]
     Active Substance: ONDANSETRON HYDROCHLORIDE
     Dosage: 8 MG, UNK
     Route: 048
     Dates: start: 20140426, end: 20140426
  23. PACLITAXEL. [Concomitant]
     Active Substance: PACLITAXEL
     Dosage: 270-282 MG, UNK
     Route: 042
     Dates: start: 20140403, end: 20140516
  24. MOVIPREP                           /06299301/ [Concomitant]
     Dosage: 1 UNK, UNK
     Route: 048
     Dates: start: 20140313, end: 20140313
  25. PHENERGAN [Concomitant]
     Active Substance: PROMETHAZINE HYDROCHLORIDE
     Dosage: 50 MG, UNK
     Route: 030
     Dates: start: 20131231, end: 20140516
  26. CLEXANE [Concomitant]
     Active Substance: ENOXAPARIN SODIUM
     Dosage: 40 MG, UNK
     Route: 058
     Dates: start: 20140313, end: 20140412
  27. ALOXI [Concomitant]
     Active Substance: PALONOSETRON HYDROCHLORIDE
     Dosage: 250 MUG, UNK
     Route: 042
     Dates: start: 20131231, end: 20140516

REACTIONS (1)
  - Ascites [Recovered/Resolved]

NARRATIVE: CASE EVENT DATE: 20140515
